FAERS Safety Report 18241393 (Version 1)
Quarter: 2020Q3

REPORT INFORMATION
  Report Type: Spontaneous
  Country: IT (occurrence: IT)
  Receive Date: 20200908
  Receipt Date: 20200908
  Transmission Date: 20201103
  Serious: Yes (Other)
  Sender: FDA-Public Use
  Company Number: NVSC2020IT244083

PATIENT
  Age: 41 Year
  Sex: Female

DRUGS (6)
  1. AMOXICILLIN TRIHYDRATE,POTASSIUM CLAVULANATE [Suspect]
     Active Substance: AMOXICILLIN\CLAVULANATE POTASSIUM
     Indication: PYREXIA
     Dosage: 825/175 MG, BID
     Route: 065
  2. JINARC [Suspect]
     Active Substance: TOLVAPTAN
     Dosage: 90 MG, QD (SPLIT DOSE:60 MG + 30 MG)
     Route: 065
  3. JINARC [Suspect]
     Active Substance: TOLVAPTAN
     Dosage: 120 MG, QD (SPLITE DOSE: 90 MG + 30 MG)
     Route: 065
  4. JINARC [Suspect]
     Active Substance: TOLVAPTAN
     Indication: CONGENITAL CYSTIC KIDNEY DISEASE
     Dosage: 60 MG, QD (SPLIT DOSE: 45 MG + 15 MG)
     Route: 065
  5. JINARC [Suspect]
     Active Substance: TOLVAPTAN
     Dosage: 60 MG, QD (SPLIT DOSE: 45 MG + 15 MG)
     Route: 065
  6. AMOXICILLIN TRIHYDRATE,POTASSIUM CLAVULANATE [Suspect]
     Active Substance: AMOXICILLIN\CLAVULANATE POTASSIUM
     Indication: PHARYNGITIS

REACTIONS (2)
  - Drug-induced liver injury [Recovering/Resolving]
  - Product use in unapproved indication [Unknown]
